FAERS Safety Report 12498838 (Version 1)
Quarter: 2016Q2

REPORT INFORMATION
  Report Type: Spontaneous
  Country: US (occurrence: US)
  Receive Date: 20160627
  Receipt Date: 20160627
  Transmission Date: 20160815
  Serious: No
  Sender: FDA-Public Use
  Company Number: US-TEVA-654269USA

PATIENT
  Age: 72 Year
  Sex: Female
  Weight: 95.34 kg

DRUGS (13)
  1. FLECAINIDE [Concomitant]
     Active Substance: FLECAINIDE
  2. HYDRALAZINE [Concomitant]
     Active Substance: HYDRALAZINE HYDROCHLORIDE
  3. AMLODIPINE [Suspect]
     Active Substance: AMLODIPINE BESYLATE
     Route: 065
  4. LOSARTAN. [Concomitant]
     Active Substance: LOSARTAN
  5. OLANZAPINE. [Suspect]
     Active Substance: OLANZAPINE
     Indication: HALLUCINATION
     Dosage: 2.5 MILLIGRAM DAILY;
     Route: 048
     Dates: start: 201602
  6. METOPROLOL. [Concomitant]
     Active Substance: METOPROLOL
  7. FIORINAL [Concomitant]
     Active Substance: ASPIRIN\BUTALBITAL\CAFFEINE
  8. PREDNISONE. [Concomitant]
     Active Substance: PREDNISONE
  9. FENTANYL. [Concomitant]
     Active Substance: FENTANYL
  10. ZOFRAN [Concomitant]
     Active Substance: ONDANSETRON HYDROCHLORIDE
  11. LIPITOR [Concomitant]
     Active Substance: ATORVASTATIN CALCIUM
  12. DILAUDID [Concomitant]
     Active Substance: HYDROMORPHONE HYDROCHLORIDE
  13. METHOTREXATE [Concomitant]
     Active Substance: METHOTREXATE

REACTIONS (5)
  - Gait disturbance [Unknown]
  - Asthenia [Not Recovered/Not Resolved]
  - Fatigue [Unknown]
  - Stomatitis [Unknown]
  - Oedema [Unknown]
